FAERS Safety Report 10453055 (Version 1)
Quarter: 2014Q3

REPORT INFORMATION
  Report Type: Spontaneous
  Country: US (occurrence: None)
  Receive Date: 20140912
  Receipt Date: 20140912
  Transmission Date: 20150326
  Serious: No
  Sender: FDA-Public Use
  Company Number: None

PATIENT
  Age: 74 Year
  Sex: Female
  Weight: 88.45 kg

DRUGS (9)
  1. ULTIMATE EYE SUPPORT [Concomitant]
  2. HEALTHY HAIR SKIN + NAILS (BIOTIN) COMPLEX B [Concomitant]
  3. CALCIUM W PHOSPHORUS [Concomitant]
  4. COENZYME Q10 [Concomitant]
     Active Substance: UBIDECARENONE
  5. ELIQUIS [Suspect]
     Active Substance: APIXABAN
     Indication: ATRIAL FIBRILLATION
     Route: 048
     Dates: start: 20140806, end: 20140829
  6. NEXIUM [Concomitant]
     Active Substance: ESOMEPRAZOLE MAGNESIUM
  7. TEKTURNA [Concomitant]
     Active Substance: ALISKIREN HEMIFUMARATE
  8. ATENOLOL. [Concomitant]
     Active Substance: ATENOLOL
  9. PRO-CAPS [Concomitant]

REACTIONS (6)
  - Arthralgia [None]
  - Joint stiffness [None]
  - Pain in extremity [None]
  - Dysstasia [None]
  - Gait disturbance [None]
  - Musculoskeletal stiffness [None]

NARRATIVE: CASE EVENT DATE: 20140812
